FAERS Safety Report 8829750 (Version 1)
Quarter: 2012Q4

REPORT INFORMATION
  Report Type: Spontaneous
  Country: US (occurrence: None)
  Receive Date: 20121005
  Receipt Date: 20121005
  Transmission Date: 20130627
  Serious: Yes (Other)
  Sender: FDA-Public Use
  Company Number: None

PATIENT
  Weight: 63 kg

DRUGS (7)
  1. NEULASTA [Suspect]
     Indication: NEUTROPENIA
     Dosage: 6 mg every 2 weeks Subcutaneously
     Route: 058
     Dates: start: 20120703
  2. NEULASTA [Suspect]
     Indication: NEUTROPENIA
     Dates: start: 20120717
  3. NEULASTA [Suspect]
     Indication: NEUTROPENIA
     Dates: start: 20120731
  4. NEULASTA [Suspect]
     Indication: NEUTROPENIA
     Dates: start: 20120814
  5. BENAZEPRIL [Concomitant]
  6. ATIVAN [Concomitant]
  7. NORVASC [Concomitant]

REACTIONS (1)
  - Myalgia [None]
